FAERS Safety Report 8287986-2 (Version None)
Quarter: 2012Q2

REPORT INFORMATION
  Report Type: 
  Country: None (occurrence: None)
  Receive Date: 20120416
  Receipt Date: 20120406
  Transmission Date: 20120825
  Serious: Yes (Other)
  Sender: FDA-Public Use
  Company Number: JP-ASTRAZENECA-2012SE23775

PATIENT
  Sex: Male

DRUGS (13)
  1. HIRNAMIN [Concomitant]
  2. MAGMITT [Concomitant]
  3. LECICARBON [Concomitant]
  4. SCOPOLAMINE [Concomitant]
  5. TRIHEXYPHENIDYL HCL [Concomitant]
  6. SEROQUEL [Suspect]
     Route: 048
  7. DEPAS [Concomitant]
  8. RISUMIC [Concomitant]
  9. LITHIUM CARBONATE [Concomitant]
  10. URINORM [Concomitant]
  11. ALLOPURINOL [Concomitant]
  12. ZOLPIDEM [Suspect]
     Route: 048
  13. RABEPRAZOLE SODIUM [Concomitant]

REACTIONS (1)
  - RETINAL TEAR [None]
